FAERS Safety Report 26184914 (Version 1)
Quarter: 2025Q4

REPORT INFORMATION
  Report Type: Report from Study
  Country: US (occurrence: US)
  Receive Date: 20251222
  Receipt Date: 20251222
  Transmission Date: 20260119
  Serious: Yes (Other)
  Sender: BIOCODEX
  Company Number: US-BIOCODEX2-2025001375

PATIENT
  Age: 3 Year
  Sex: Male
  Weight: 13.6 kg

DRUGS (16)
  1. DIACOMIT [Suspect]
     Active Substance: STIRIPENTOL
     Indication: Severe myoclonic epilepsy of infancy
     Dosage: 375 MG BY MOUTH TWICE DAILY.
     Dates: start: 20241108
  2. DIACOMIT [Suspect]
     Active Substance: STIRIPENTOL
     Dosage: TAKE 500 MG BY MOUTH TWICE DAILY
     Dates: start: 20241108
  3. DIACOMIT [Suspect]
     Active Substance: STIRIPENTOL
  4. DIACOMIT [Suspect]
     Active Substance: STIRIPENTOL
  5. EPIDIOLEX [Concomitant]
     Active Substance: CANNABIDIOL
     Indication: Product used for unknown indication
  6. EPIDIOLEX [Concomitant]
     Active Substance: CANNABIDIOL
  7. FINTEPLA [Concomitant]
     Active Substance: FENFLURAMINE
     Indication: Product used for unknown indication
  8. FINTEPLA [Concomitant]
     Active Substance: FENFLURAMINE
  9. Valproic Acid and Derivatives [Concomitant]
     Indication: Product used for unknown indication
  10. Valproic Acid and Derivatives [Concomitant]
  11. Valtoco 10 MG Dose [Concomitant]
     Indication: Product used for unknown indication
  12. Valtoco 10 MG Dose [Concomitant]
  13. CLOBAZAM [Concomitant]
     Active Substance: CLOBAZAM
     Indication: Severe myoclonic epilepsy of infancy
  14. CLOBAZAM [Concomitant]
     Active Substance: CLOBAZAM
  15. CLONAZEPAM [Concomitant]
     Active Substance: CLONAZEPAM
     Indication: Product used for unknown indication
  16. CLONAZEPAM [Concomitant]
     Active Substance: CLONAZEPAM

REACTIONS (3)
  - Seizure [Unknown]
  - Product preparation issue [Unknown]
  - Off label use [Unknown]

NARRATIVE: CASE EVENT DATE: 20250826
